FAERS Safety Report 13397672 (Version 1)
Quarter: 2017Q2

REPORT INFORMATION
  Report Type: Spontaneous
  Country: US (occurrence: US)
  Receive Date: 20170403
  Receipt Date: 20170403
  Transmission Date: 20170830
  Serious: No
  Sender: FDA-Public Use
  Company Number: US-ELI_LILLY_AND_COMPANY-US201703010969

PATIENT
  Sex: Female

DRUGS (1)
  1. TALTZ [Suspect]
     Active Substance: IXEKIZUMAB
     Indication: PSORIASIS
     Dosage: 80 MG, UNKNOWN
     Route: 058
     Dates: start: 20170210

REACTIONS (5)
  - Fatigue [Not Recovered/Not Resolved]
  - Tremor [Unknown]
  - Injection site erythema [Unknown]
  - Injection site pruritus [Unknown]
  - Dyspnoea [Unknown]
